FAERS Safety Report 9462687 (Version 3)
Quarter: 2013Q3

REPORT INFORMATION
  Report Type: Spontaneous
  Country: US (occurrence: US)
  Receive Date: 20130816
  Receipt Date: 20130920
  Transmission Date: 20140515
  Serious: Yes (Other)
  Sender: FDA-Public Use
  Company Number: US-BAYER-2013-096409

PATIENT
  Age: 6 Year
  Sex: Male

DRUGS (3)
  1. KOGENATE FS [Suspect]
     Indication: FACTOR VIII DEFICIENCY
     Dosage: 559 UNITS VIA PORT
     Dates: start: 20130804
  2. KOGENATE FS [Suspect]
     Indication: FACTOR VIII DEFICIENCY
     Dosage: 559 UNITS VIA PORT
     Dates: start: 20130807
  3. KOGENATE FS [Suspect]
     Indication: FACTOR VIII DEFICIENCY
     Dosage: UNK
     Dates: start: 20130713

REACTIONS (9)
  - Abdominal pain [Recovered/Resolved]
  - Headache [Recovered/Resolved]
  - Abdominal pain [None]
  - Headache [None]
  - Pyrexia [None]
  - Pyrexia [None]
  - Abdominal pain [Recovered/Resolved]
  - Headache [Recovered/Resolved]
  - Blood culture positive [None]
